FAERS Safety Report 9203910 (Version 1)
Quarter: 2013Q1

REPORT INFORMATION
  Report Type: Spontaneous
  Country: US (occurrence: None)
  Receive Date: 20120709
  Receipt Date: 20120709
  Transmission Date: 20140127
  Serious: Yes (Hospitalization, Other)
  Sender: FDA-Public Use
  Company Number: 2012P1024673

PATIENT
  Sex: Male

DRUGS (2)
  1. AMICAR [Suspect]
     Dosage: Q6H
     Route: 048
  2. AMICAR [Suspect]
     Indication: POST PROCEDURAL HAEMORRHAGE
     Dosage: Q6H
     Route: 048

REACTIONS (1)
  - Cerebrovascular accident [None]
